FAERS Safety Report 8591219-7 (Version None)
Quarter: 2012Q3

REPORT INFORMATION
  Report Type: 
  Country: None (occurrence: None)
  Receive Date: 20120813
  Receipt Date: 20091128
  Transmission Date: 20120928
  Serious: Yes (Hospitalization, Other)
  Sender: FDA-Public Use
  Company Number: PT-ROCHE-1092542

PATIENT
  Age: 58 Year
  Sex: Female

DRUGS (2)
  1. COPEGUS [Suspect]
     Indication: HEPATITIS C
     Dates: start: 20080926, end: 20090731
  2. PEGASYS [Suspect]
     Indication: HEPATITIS C
     Dates: start: 20080926, end: 20090731

REACTIONS (11)
  - PALPITATIONS [None]
  - ALOPECIA [None]
  - MYALGIA [None]
  - DEPRESSED MOOD [None]
  - VISUAL IMPAIRMENT [None]
  - ANXIETY [None]
  - PAIN [None]
  - SYNCOPE [None]
  - HYPERTENSION [None]
  - PSYCHIATRIC SYMPTOM [None]
  - FATIGUE [None]
